FAERS Safety Report 6936522-9 (Version None)
Quarter: 2010Q3

REPORT INFORMATION
  Report Type: 
  Country: None (occurrence: None)
  Receive Date: 20100823
  Receipt Date: 20100811
  Transmission Date: 20110219
  Serious: Yes (Hospitalization)
  Sender: FDA-Public Use
  Company Number: US-PFIZER INC-2010101509

PATIENT
  Sex: Female

DRUGS (1)
  1. DILANTIN [Suspect]
     Dosage: UNK
     Dates: end: 20080108

REACTIONS (1)
  - STEVENS-JOHNSON SYNDROME [None]
